FAERS Safety Report 24739116 (Version 1)
Quarter: 2024Q4

REPORT INFORMATION
  Report Type: Spontaneous
  Country: US (occurrence: US)
  Receive Date: 20241216
  Receipt Date: 20241216
  Transmission Date: 20250114
  Serious: No
  Sender: PFIZER
  Company Number: US-PFIZER INC-202400322508

PATIENT
  Age: 51 Year
  Sex: Female
  Weight: 53.52 kg

DRUGS (2)
  1. DIFLUCAN [Suspect]
     Active Substance: FLUCONAZOLE
     Indication: Vulvovaginal candidiasis
     Dosage: TOOK ONE TABLET ON FRIDAY AND THEN 2 DAYS LATER TOOK THE SECOND DOSE
     Dates: start: 20241206
  2. AMOXICILLIN [Concomitant]
     Active Substance: AMOXICILLIN
     Indication: Vulvovaginal candidiasis

REACTIONS (2)
  - Drug ineffective [Unknown]
  - Drug resistance [Unknown]

NARRATIVE: CASE EVENT DATE: 20241206
